FAERS Safety Report 4587228-5 (Version None)
Quarter: 2005Q1

REPORT INFORMATION
  Report Type: 
  Country: None (occurrence: None)
  Receive Date: 20050215
  Receipt Date: 20050203
  Transmission Date: 20050727
  Serious: Yes (Death)
  Sender: FDA-Public Use
  Company Number: MK200502-0106-1

PATIENT
  Sex: Female

DRUGS (1)
  1. RESTORIL [Suspect]

REACTIONS (1)
  - RESPIRATORY FAILURE [None]
